FAERS Safety Report 7322558-5 (Version None)
Quarter: 2011Q1

REPORT INFORMATION
  Report Type: 
  Country: None (occurrence: None)
  Receive Date: 20110215
  Receipt Date: 20110209
  Transmission Date: 20110831
  Serious: Yes (Other)
  Sender: FDA-Public Use
  Company Number: 2011SP006099

PATIENT
  Age: 18 Year
  Sex: Female
  Weight: 74.1 kg

DRUGS (6)
  1. DICLOFENAC [Concomitant]
  2. FENTANYL [Concomitant]
  3. IMPLANON [Suspect]
     Indication: CONTRACEPTION
     Dosage: 68 MG;SBDE
     Route: 059
     Dates: start: 20100816, end: 20110114
  4. DOXYCYCLINE [Concomitant]
  5. METRONIDAZOLE [Concomitant]
  6. PROPOFOL [Concomitant]

REACTIONS (3)
  - ANGIOEDEMA [None]
  - URTICARIA [None]
  - DYSPNOEA [None]
